FAERS Safety Report 7073062-3 (Version None)
Quarter: 2010Q4

REPORT INFORMATION
  Report Type: 
  Country: None (occurrence: None)
  Receive Date: 20101029
  Receipt Date: 20100430
  Transmission Date: 20110411
  Serious: No
  Sender: FDA-Public Use
  Company Number: A0855695A

PATIENT
  Sex: Female

DRUGS (4)
  1. ADVAIR DISKUS 100/50 [Suspect]
     Indication: ASTHMA
     Dosage: 1PUFF TWICE PER DAY
     Route: 055
     Dates: start: 20070101
  2. FLOVENT [Suspect]
     Indication: ASTHMA PROPHYLAXIS
     Route: 055
  3. BIRTH CONTROL [Concomitant]
  4. INHALER [Concomitant]

REACTIONS (8)
  - ADVERSE REACTION [None]
  - CONFUSIONAL STATE [None]
  - DERMATITIS [None]
  - DIZZINESS [None]
  - FEELING JITTERY [None]
  - ILL-DEFINED DISORDER [None]
  - LOCAL SWELLING [None]
  - RASH [None]
